FAERS Safety Report 8043347-2 (Version None)
Quarter: 2012Q1

REPORT INFORMATION
  Report Type: 
  Country: None (occurrence: None)
  Receive Date: 20120112
  Receipt Date: 20120109
  Transmission Date: 20120608
  Serious: Yes (Other)
  Sender: FDA-Public Use
  Company Number: IE-GLAXOSMITHKLINE-B0774916A

PATIENT

DRUGS (3)
  1. VOTRIENT [Suspect]
     Indication: RENAL CANCER
     Dosage: 800MG PER DAY
     Route: 048
     Dates: start: 20100101
  2. MICARDIS [Concomitant]
     Indication: BLOOD PRESSURE
     Route: 048
  3. ISTIN [Concomitant]
     Indication: BLOOD PRESSURE
     Route: 048

REACTIONS (3)
  - RENAL FUNCTION TEST ABNORMAL [None]
  - LIVER FUNCTION TEST ABNORMAL [None]
  - BLOOD PRESSURE INCREASED [None]
